FAERS Safety Report 6293969-4 (Version None)
Quarter: 2009Q3

REPORT INFORMATION
  Report Type: 
  Country: None (occurrence: None)
  Receive Date: 20090803
  Receipt Date: 20080909
  Transmission Date: 20100115
  Serious: No
  Sender: FDA-Public Use
  Company Number: A0644556A

PATIENT
  Age: 67 Year
  Sex: Female

DRUGS (1)
  1. NICORETTE [Suspect]
     Dosage: 4MG AS DIRECTED
     Route: 002

REACTIONS (2)
  - ORAL DISCOMFORT [None]
  - PRODUCT QUALITY ISSUE [None]
